FAERS Safety Report 20132476 (Version 6)
Quarter: 2022Q1

REPORT INFORMATION
  Report Type: Spontaneous
  Country: US (occurrence: US)
  Receive Date: 20211130
  Receipt Date: 20220120
  Transmission Date: 20220424
  Serious: Yes (Hospitalization, Other)
  Sender: FDA-Public Use
  Company Number: US-AMGEN-USASP2021189242

PATIENT
  Age: 68 Year
  Sex: Female
  Weight: 46.266 kg

DRUGS (20)
  1. ENBREL [Suspect]
     Active Substance: ETANERCEPT
     Indication: Rheumatoid arthritis
     Dosage: 50 MILLIGRAM, QWK
     Route: 058
     Dates: start: 20210908
  2. MELOXICAM [Suspect]
     Active Substance: MELOXICAM
     Indication: Product used for unknown indication
     Route: 065
  3. POTASSIUM CHLORIDE [Concomitant]
     Active Substance: POTASSIUM CHLORIDE
     Dosage: 10 MEQ, TAKE 1 TABLET EVERY DAY
     Route: 048
     Dates: start: 20200207
  4. CYANOCOBALAMIN [Concomitant]
     Active Substance: CYANOCOBALAMIN
     Dosage: 1000 MCG, QD AND THEN ONCE A WEEK FOR 4 WEEKS
     Dates: start: 20200526
  5. SPIRONOLACTONE [Concomitant]
     Active Substance: SPIRONOLACTONE
     Dosage: 25 MILLIGRAM,ONE TABLET QD
     Route: 048
     Dates: start: 20200818
  6. ACETAZOLAMIDE [Concomitant]
     Active Substance: ACETAZOLAMIDE
     Dosage: 25 MILLIGRAM,TAKE ONE TAB, QD
     Route: 048
     Dates: start: 20200818
  7. DICLOFENAC DIETHYLAMINE [Concomitant]
     Active Substance: DICLOFENAC DIETHYLAMINE
     Dosage: 2 GRAM, FOUR TIMES EVEY DAY
     Route: 061
     Dates: start: 20200818
  8. OMEPRAZOLE [Concomitant]
     Active Substance: OMEPRAZOLE
     Dosage: ONE CAPSULE QD, BEFORE MEAL
     Route: 048
     Dates: start: 20210208
  9. TORSEMIDE [Concomitant]
     Active Substance: TORSEMIDE
     Dosage: 5 MILLIGRAM,TWO TABLETS QD
     Route: 048
     Dates: start: 20210209
  10. VENTOLIN HFA [Concomitant]
     Active Substance: ALBUTEROL SULFATE
     Dosage: 2 PUFF EVERY 4-6 HOURS
     Dates: start: 20210209
  11. FAMOTIDINE [Concomitant]
     Active Substance: FAMOTIDINE
     Dosage: 40 MILLIGRAM, EVERYDAY AT BED TIME
     Route: 048
     Dates: start: 20210310
  12. PRAMIPEXOLE [Concomitant]
     Active Substance: PRAMIPEXOLE
     Dosage: UNK, ONE TABLET 3 TIMES A DAY
     Route: 048
     Dates: start: 20210310
  13. METOPROLOL SUCCINATE [Concomitant]
     Active Substance: METOPROLOL SUCCINATE
     Dosage: 50 MILLIGRAM, ONE TABLET EVERY DAY
     Route: 048
     Dates: start: 20210322
  14. TRETINOIN [Concomitant]
     Active Substance: TRETINOIN
     Dosage: 0.025%, APPLY PEA SIZE TO FACE BRUISE
     Dates: start: 20210407
  15. INCRUSE ELLIPTA [Concomitant]
     Active Substance: UMECLIDINIUM BROMIDE
     Dosage: 62.5 MCG, ONE PUFF EVERY DAY AT SAME TIME
     Dates: start: 20210504
  16. SERTRALINE [Concomitant]
     Active Substance: SERTRALINE HYDROCHLORIDE
     Dosage: 100 MILLIGRAM, ONE TABLET EVERY DAY
     Route: 048
     Dates: start: 20210510
  17. ESTRADIOL [Concomitant]
     Active Substance: ESTRADIOL
     Dosage: 0.5 MILLIGRAM, QD
     Route: 048
  18. FLONASE ALLERGY RELIEF [Concomitant]
     Active Substance: FLUTICASONE PROPIONATE
     Dosage: 50 MCG, SPARY 1-2 SPARY, EVERY DAY
     Dates: start: 20210614
  19. HYDROXYCHLOROQUINE [Concomitant]
     Active Substance: HYDROXYCHLOROQUINE
     Dosage: 200 MILLIGRAM
     Route: 048
     Dates: start: 20210617
  20. ALPRAZOLAM [Concomitant]
     Active Substance: ALPRAZOLAM
     Dosage: 1 MILLIGRAM, EVERY DAY
     Route: 048
     Dates: start: 20210810

REACTIONS (17)
  - Joint dislocation [Not Recovered/Not Resolved]
  - Liver disorder [Unknown]
  - Product storage error [Unknown]
  - Device difficult to use [Unknown]
  - Adverse event [Unknown]
  - Paranasal sinus discomfort [Unknown]
  - Cough [Unknown]
  - Abdominal pain [Unknown]
  - Dyspepsia [Unknown]
  - Muscular weakness [Unknown]
  - Hypoaesthesia [Unknown]
  - Nail disorder [Unknown]
  - Contusion [Unknown]
  - Arthralgia [Unknown]
  - Joint swelling [Unknown]
  - Anxiety [Unknown]
  - Dyspnoea [Unknown]

NARRATIVE: CASE EVENT DATE: 20210101
